FAERS Safety Report 24767754 (Version 1)
Quarter: 2024Q4

REPORT INFORMATION
  Report Type: Spontaneous
  Country: CH (occurrence: CH)
  Receive Date: 20241223
  Receipt Date: 20241223
  Transmission Date: 20250115
  Serious: Yes (Other)
  Sender: MERCK
  Company Number: None

PATIENT
  Age: 80 Year
  Sex: Female
  Weight: 49.8 kg

DRUGS (1)
  1. KEYTRUDA [Suspect]
     Active Substance: PEMBROLIZUMAB
     Indication: Lung adenocarcinoma
     Dosage: 200 MG LES 27.06.2024, 16.07.2024, 06.08.2024, 04.09.2024, 17.09.2024, 08.10.2024, 28.10.2024
     Route: 040
     Dates: start: 20240627, end: 20241028

REACTIONS (2)
  - Aphthous ulcer [Recovered/Resolved]
  - Aphthous ulcer [Recovered/Resolved]

NARRATIVE: CASE EVENT DATE: 20240801
